FAERS Safety Report 9741454 (Version 2)
Quarter: 2013Q4

REPORT INFORMATION
  Report Type: Report from Study
  Country: CA (occurrence: CA)
  Receive Date: 20131209
  Receipt Date: 20131209
  Transmission Date: 20140711
  Serious: Yes (Other)
  Sender: FDA-Public Use
  Company Number: PHHY2013CA130193

PATIENT
  Age: 52 Year
  Sex: Female

DRUGS (6)
  1. CLOZARIL [Suspect]
     Indication: SCHIZOPHRENIA, PARANOID TYPE
     Dosage: UNK UKN, UNK
     Dates: start: 19990526
  2. CLOZARIL [Suspect]
     Dosage: 350 MG, DAILY (100 MG AT DINNER AND 250 MG AT BEDTIME)
     Route: 048
     Dates: start: 2004, end: 20131130
  3. COGENTIN [Concomitant]
     Dosage: 2 MG, QHS
  4. SEROQUEL [Concomitant]
     Dosage: 100 MG, QHS
  5. RESTORIL [Concomitant]
  6. RAVOTRIL [Concomitant]
     Dosage: 1.5 MG, DAILY (0.25 MG AM AND AT LUNCH, 0.5 MG AT DINNER AND QHS)

REACTIONS (6)
  - Cardiac failure [Not Recovered/Not Resolved]
  - Infective exacerbation of chronic obstructive airways disease [Not Recovered/Not Resolved]
  - Type 1 diabetes mellitus [Unknown]
  - Weight increased [Unknown]
  - Obesity [Unknown]
  - Antipsychotic drug level decreased [Not Recovered/Not Resolved]
